FAERS Safety Report 17929540 (Version 1)
Quarter: 2020Q2

REPORT INFORMATION
  Report Type: Spontaneous
  Country: US (occurrence: US)
  Receive Date: 20200623
  Receipt Date: 20200623
  Transmission Date: 20200714
  Serious: No
  Sender: FDA-Public Use
  Company Number: US-ALLERGAN-1938278US

PATIENT
  Age: 30 Year
  Sex: Female

DRUGS (1)
  1. KYBELLA [Suspect]
     Active Substance: DEOXYCHOLIC ACID
     Indication: PRODUCT USED FOR UNKNOWN INDICATION
     Dosage: UNK, SINGLE
     Route: 058
     Dates: start: 20180515, end: 20180515

REACTIONS (3)
  - Facial paresis [Unknown]
  - Injection site pain [Unknown]
  - Nodule [Unknown]

NARRATIVE: CASE EVENT DATE: 20191002
